FAERS Safety Report 17670319 (Version 2)
Quarter: 2020Q2

REPORT INFORMATION
  Report Type: Spontaneous
  Country: NL (occurrence: ES)
  Receive Date: 20200415
  Receipt Date: 20200508
  Transmission Date: 20200713
  Serious: Yes (Death)
  Sender: FDA-Public Use
  Company Number: ES-FRESENIUS KABI-FK202003746

PATIENT
  Age: 75 Year
  Sex: Male

DRUGS (8)
  1. PREDNISONE. [Concomitant]
     Active Substance: PREDNISONE
     Indication: PRODUCT USED FOR UNKNOWN INDICATION
     Route: 048
     Dates: start: 20200322, end: 20200325
  2. AZITHROMYCIN ANHYDROUS. [Interacting]
     Active Substance: AZITHROMYCIN ANHYDROUS
     Indication: CORONAVIRUS INFECTION
     Route: 048
     Dates: start: 20200319, end: 20200324
  3. ENOXAPARIN SODIUM. [Concomitant]
     Active Substance: ENOXAPARIN SODIUM
     Indication: PRODUCT USED FOR UNKNOWN INDICATION
     Route: 058
     Dates: start: 20200324, end: 20200325
  4. CEFTRIAXONE. [Concomitant]
     Active Substance: CEFTRIAXONE
     Indication: PRODUCT USED FOR UNKNOWN INDICATION
     Route: 065
     Dates: start: 20200322
  5. LEVOFLOXACIN (MANUFACTURER UNKNOWN) [Suspect]
     Active Substance: LEVOFLOXACIN
     Indication: PRODUCT USED FOR UNKNOWN INDICATION
     Route: 065
     Dates: start: 20200322
  6. TACROLIMUS. [Suspect]
     Active Substance: TACROLIMUS
     Indication: PRODUCT USED FOR UNKNOWN INDICATION
     Route: 048
     Dates: start: 20200323, end: 20200324
  7. RITONAVIR/LOPINAVIR [Interacting]
     Active Substance: LOPINAVIR\RITONAVIR
     Indication: CORONAVIRUS INFECTION
     Route: 048
     Dates: start: 20200322, end: 20200323
  8. HYDROXYCHLOROQUINE SULFATE. [Interacting]
     Active Substance: HYDROXYCHLOROQUINE SULFATE
     Indication: PRODUCT USED FOR UNKNOWN INDICATION
     Route: 048
     Dates: start: 20200322, end: 20200325

REACTIONS (1)
  - Sudden death [Fatal]

NARRATIVE: CASE EVENT DATE: 20200326
